FAERS Safety Report 4322024-5 (Version None)
Quarter: 2004Q1

REPORT INFORMATION
  Report Type: 
  Country: None (occurrence: None)
  Receive Date: 20040319
  Receipt Date: 20031212
  Transmission Date: 20041129
  Serious: No
  Sender: FDA-Public Use
  Company Number: 200313115

PATIENT
  Age: 66 Year
  Sex: Female
  Weight: 74.8435 kg

DRUGS (5)
  1. LUMIGAN [Suspect]
     Indication: GLAUCOMA
     Dosage: 2 DROP QHS EYE
     Dates: start: 20030703, end: 20030730
  2. TRIAM/HCTZ [Concomitant]
  3. PREMARIN [Concomitant]
  4. CELEBREX [Concomitant]
  5. CENTRIUM [Concomitant]

REACTIONS (2)
  - HAIR GROWTH ABNORMAL [None]
  - SKIN HYPERPIGMENTATION [None]
